FAERS Safety Report 6733028-7 (Version None)
Quarter: 2010Q2

REPORT INFORMATION
  Report Type: 
  Country: None (occurrence: None)
  Receive Date: 20100519
  Receipt Date: 20100506
  Transmission Date: 20101027
  Serious: Yes (Hospitalization)
  Sender: FDA-Public Use
  Company Number: US-JNJFOC-20100503458

PATIENT
  Age: 2 Year
  Sex: Male

DRUGS (4)
  1. CONCENTRATED TYLENOL INFANT DROPS [Suspect]
  2. CONCENTRATED TYLENOL INFANT DROPS [Suspect]
     Indication: PYREXIA
  3. CONCENTRATED TYLENOL INFANT DROPS [Suspect]
  4. CONCENTRATED TYLENOL INFANT DROPS [Suspect]
     Indication: PYREXIA

REACTIONS (2)
  - PRODUCT QUALITY ISSUE [None]
  - PYREXIA [None]
